FAERS Safety Report 16877044 (Version 5)
Quarter: 2019Q4

REPORT INFORMATION
  Report Type: Spontaneous
  Country: TR (occurrence: TR)
  Receive Date: 20191002
  Receipt Date: 20191126
  Transmission Date: 20200122
  Serious: Yes (Other)
  Sender: FDA-Public Use
  Company Number: TR-PFIZER INC-2019423872

PATIENT
  Age: 67 Year
  Sex: Male
  Weight: 70 kg

DRUGS (7)
  1. CITOLES [Interacting]
     Active Substance: ESCITALOPRAM OXALATE
     Indication: ANTIDEPRESSANT THERAPY
     Dosage: 5 MG, 1X/DAY
     Route: 048
     Dates: start: 20190829, end: 201909
  2. NORVASC [Interacting]
     Active Substance: AMLODIPINE BESYLATE
     Indication: HYPERTENSION
     Dosage: 5 MG, 1X/DAY
     Route: 048
     Dates: start: 2009
  3. NORVASC [Interacting]
     Active Substance: AMLODIPINE BESYLATE
     Dosage: 10 MG, 1X/DAY
     Route: 048
     Dates: start: 2019
  4. XALATAN [Concomitant]
     Active Substance: LATANOPROST
     Indication: OCULAR DISCOMFORT
     Dosage: UNK, ALTERNATE DAY
     Dates: start: 2009
  5. NORVASC [Interacting]
     Active Substance: AMLODIPINE BESYLATE
     Dosage: 7.5 MG, 1X/DAY (5 MG IN THE MORNING / 2.5 MG IN THE EVENING)
     Route: 048
     Dates: start: 201909, end: 2019
  6. NORVASC [Interacting]
     Active Substance: AMLODIPINE BESYLATE
     Indication: SLEEP PARALYSIS
     Dosage: 5 MG, 2X/DAY
     Route: 048
  7. DELIX (RAMIPRIL) [Suspect]
     Active Substance: RAMIPRIL
     Indication: HYPERTENSION
     Dosage: 5 MG, 1X/DAY
     Route: 048
     Dates: start: 2002, end: 2009

REACTIONS (10)
  - Drug interaction [Recovered/Resolved]
  - Somnolence [Recovered/Resolved]
  - Off label use [Unknown]
  - Nasal congestion [Recovered/Resolved]
  - Food interaction [Recovered/Resolved]
  - Blood pressure decreased [Recovered/Resolved]
  - Nocturia [Recovered/Resolved]
  - Nightmare [Recovered/Resolved]
  - Sleep paralysis [Recovered/Resolved]
  - Hyperhidrosis [Recovered/Resolved]

NARRATIVE: CASE EVENT DATE: 201908
